FAERS Safety Report 15481781 (Version 4)
Quarter: 2019Q1

REPORT INFORMATION
  Report Type: Report from Study
  Country: US (occurrence: US)
  Receive Date: 20181010
  Receipt Date: 20190103
  Transmission Date: 20190417
  Serious: Yes (Death)
  Sender: FDA-Public Use
  Company Number: US-ROCHE-2194451

PATIENT
  Age: 76 Year
  Sex: Male
  Weight: 74.3 kg

DRUGS (32)
  1. ATEZOLIZUMAB. [Suspect]
     Active Substance: ATEZOLIZUMAB
     Route: 042
     Dates: start: 20180522
  2. CARBOPLATIN. [Suspect]
     Active Substance: CARBOPLATIN
     Dosage: DAY 8 CYCLE 1
     Route: 042
     Dates: start: 20180219
  3. ATEZOLIZUMAB. [Suspect]
     Active Substance: ATEZOLIZUMAB
     Route: 042
     Dates: start: 20180703
  4. CARBOPLATIN. [Suspect]
     Active Substance: CARBOPLATIN
     Route: 042
     Dates: start: 20180501
  5. PACLITAXEL. [Suspect]
     Active Substance: PACLITAXEL
     Dosage: DAY 15 CYCLE 1
     Route: 042
     Dates: start: 20180226
  6. PACLITAXEL. [Suspect]
     Active Substance: PACLITAXEL
     Route: 042
     Dates: start: 20180410
  7. ASPRIN [Concomitant]
     Active Substance: ASPIRIN
     Route: 048
     Dates: start: 20180929
  8. ATEZOLIZUMAB. [Suspect]
     Active Substance: ATEZOLIZUMAB
     Route: 042
     Dates: start: 20180814
  9. CARBOPLATIN. [Suspect]
     Active Substance: CARBOPLATIN
     Dosage: DAY 15 CYCLE 1
     Route: 042
     Dates: start: 20180226
  10. CARBOPLATIN. [Suspect]
     Active Substance: CARBOPLATIN
     Dosage: DAY 36 CYCLE 1
     Route: 042
     Dates: start: 20180319
  11. CARBOPLATIN. [Suspect]
     Active Substance: CARBOPLATIN
     Route: 042
     Dates: start: 20180410
  12. PACLITAXEL. [Suspect]
     Active Substance: PACLITAXEL
     Dosage: DAY 22 CYCLE 1
     Route: 042
     Dates: start: 20180305
  13. PACLITAXEL. [Suspect]
     Active Substance: PACLITAXEL
     Dosage: DAY 29 CYCLE 1
     Route: 042
     Dates: start: 20180312
  14. LISINOPRIL. [Concomitant]
     Active Substance: LISINOPRIL
     Route: 048
     Dates: start: 20180929
  15. CLOPIDOGREL [Concomitant]
     Active Substance: CLOPIDOGREL BISULFATE
     Route: 048
     Dates: start: 20180929
  16. ATEZOLIZUMAB. [Suspect]
     Active Substance: ATEZOLIZUMAB
     Indication: NON-SMALL CELL LUNG CANCER
     Dosage: DAY 1 CYCLE 1
     Route: 042
     Dates: start: 20180212
  17. ATEZOLIZUMAB. [Suspect]
     Active Substance: ATEZOLIZUMAB
     Route: 042
     Dates: start: 20180612
  18. PREDNISONE. [Concomitant]
     Active Substance: PREDNISONE
     Route: 048
  19. ATEZOLIZUMAB. [Suspect]
     Active Substance: ATEZOLIZUMAB
     Route: 042
     Dates: start: 20180501
  20. CARBOPLATIN. [Suspect]
     Active Substance: CARBOPLATIN
     Indication: NON-SMALL CELL LUNG CANCER
     Dosage: DAY 1 CYCLE 1
     Route: 042
     Dates: start: 20180212
  21. CARBOPLATIN. [Suspect]
     Active Substance: CARBOPLATIN
     Dosage: DAY 22 CYCLE 1
     Route: 042
     Dates: start: 20180305
  22. PACLITAXEL. [Suspect]
     Active Substance: PACLITAXEL
     Indication: NON-SMALL CELL LUNG CANCER
     Dosage: DAY 1 CYCLE 1
     Route: 042
     Dates: start: 20180212
  23. PACLITAXEL. [Suspect]
     Active Substance: PACLITAXEL
     Dosage: DAY 36 CYCLE 1
     Route: 042
     Dates: start: 20180319
  24. ATORVASTATIN [Concomitant]
     Active Substance: ATORVASTATIN
     Route: 048
  25. CARVEDILOL. [Concomitant]
     Active Substance: CARVEDILOL
     Route: 048
     Dates: start: 20180928
  26. ATEZOLIZUMAB. [Suspect]
     Active Substance: ATEZOLIZUMAB
     Dosage: DAY 22 CYCLE1
     Route: 042
     Dates: start: 20180305
  27. ATEZOLIZUMAB. [Suspect]
     Active Substance: ATEZOLIZUMAB
     Route: 042
     Dates: start: 20180724
  28. PACLITAXEL. [Suspect]
     Active Substance: PACLITAXEL
     Route: 042
     Dates: start: 20180501
  29. ATEZOLIZUMAB. [Suspect]
     Active Substance: ATEZOLIZUMAB
     Route: 042
     Dates: start: 20180410
  30. CARBOPLATIN. [Suspect]
     Active Substance: CARBOPLATIN
     Dosage: DAY 29 CYCLE 1
     Route: 042
     Dates: start: 20180312
  31. PACLITAXEL. [Suspect]
     Active Substance: PACLITAXEL
     Dosage: DAY 8 CYCLE 1
     Route: 042
     Dates: start: 20180219
  32. ACETAMINOPHEN. [Concomitant]
     Active Substance: ACETAMINOPHEN
     Route: 048

REACTIONS (1)
  - Acute myocardial infarction [Fatal]

NARRATIVE: CASE EVENT DATE: 20180926
